FAERS Safety Report 13583771 (Version 1)
Quarter: 2017Q2

REPORT INFORMATION
  Report Type: Spontaneous
  Country: US (occurrence: US)
  Receive Date: 20170526
  Receipt Date: 20170526
  Transmission Date: 20170830
  Serious: Yes (Hospitalization, Other)
  Sender: FDA-Public Use
  Company Number: US-AMGEN-USASP2017079021

PATIENT
  Age: 65 Year
  Sex: Female

DRUGS (2)
  1. BENADRYL [Suspect]
     Active Substance: DIPHENHYDRAMINE HYDROCHLORIDE
     Indication: PRODUCT USED FOR UNKNOWN INDICATION
     Dosage: UNK
     Route: 065
  2. NEULASTA [Suspect]
     Active Substance: PEGFILGRASTIM
     Indication: PRODUCT USED FOR UNKNOWN INDICATION
     Dosage: UNK
     Route: 065

REACTIONS (8)
  - Rash [Recovered/Resolved]
  - Application site swelling [Recovered/Resolved]
  - Application site pruritus [Recovered/Resolved]
  - Dysphagia [Unknown]
  - Atrial fibrillation [Unknown]
  - Application site rash [Recovered/Resolved]
  - Infection [Unknown]
  - Flushing [Unknown]

NARRATIVE: CASE EVENT DATE: 201704
